FAERS Safety Report 18919046 (Version 1)
Quarter: 2021Q1

REPORT INFORMATION
  Report Type: Spontaneous
  Country: BR (occurrence: BR)
  Receive Date: 20210220
  Receipt Date: 20210220
  Transmission Date: 20210420
  Serious: Yes (Other)
  Sender: FDA-Public Use
  Company Number: NVSC2021BR037422

PATIENT
  Sex: Female

DRUGS (1)
  1. PARLODEL [Suspect]
     Active Substance: BROMOCRIPTINE MESYLATE
     Indication: PRODUCT USED FOR UNKNOWN INDICATION
     Dosage: UNK
     Route: 065

REACTIONS (12)
  - Vomiting [Unknown]
  - Hyperprolactinaemia [Not Recovered/Not Resolved]
  - Malaise [Unknown]
  - Chest discomfort [Not Recovered/Not Resolved]
  - Amenorrhoea [Not Recovered/Not Resolved]
  - Eyelid ptosis [Unknown]
  - Headache [Unknown]
  - Somnolence [Unknown]
  - Pituitary cancer metastatic [Unknown]
  - Blood prolactin increased [Unknown]
  - Alopecia [Not Recovered/Not Resolved]
  - Nausea [Not Recovered/Not Resolved]
